FAERS Safety Report 4776261-6 (Version None)
Quarter: 2005Q3

REPORT INFORMATION
  Report Type: 
  Country: None (occurrence: None)
  Receive Date: 20050914
  Receipt Date: 20050211
  Transmission Date: 20060218
  Serious: Yes (Other)
  Sender: FDA-Public Use
  Company Number: 163-20785-05020406

PATIENT
  Sex: 0

DRUGS (6)
  1. THALOMID [Suspect]
     Indication: NON-SMALL CELL LUNG CANCER
     Dosage: UNKNOWN, ORAL
     Route: 048
  2. KLONOPIN [Suspect]
     Dosage: UNKNOWN
     Route: 065
  3. NEURONTIN [Suspect]
     Dosage: UNKNOWN
     Route: 065
  4. OXYCONTIN [Suspect]
     Dosage: UNKNOWN
     Route: 065
  5. OXYCODONE [Suspect]
     Dosage: UNKNOWN
     Route: 065
  6. PAXIL [Suspect]
     Dosage: UNKNOWN
     Route: 065

REACTIONS (1)
  - DIZZINESS [None]
